FAERS Safety Report 7563094-0 (Version None)
Quarter: 2011Q2

REPORT INFORMATION
  Report Type: 
  Country: None (occurrence: None)
  Receive Date: 20110622
  Receipt Date: 20110616
  Transmission Date: 20111010
  Serious: Yes (Hospitalization, Other)
  Sender: FDA-Public Use
  Company Number: AT-SANOFI-AVENTIS-2010SA058885

PATIENT
  Age: 64 Year
  Sex: Male

DRUGS (23)
  1. CLOPIDOGREL [Concomitant]
     Indication: STENT PLACEMENT
     Route: 048
     Dates: end: 20101231
  2. IBUPROFEN [Concomitant]
     Dates: start: 20100910, end: 20100917
  3. CRESTOR [Concomitant]
     Indication: HYPERLIPIDAEMIA
     Route: 048
  4. SEDACORON [Concomitant]
     Indication: ATRIAL FIBRILLATION
     Route: 048
  5. NOVORAPID [Concomitant]
     Dosage: DOSE:37 UNIT(S)
     Route: 051
     Dates: start: 20091126
  6. ASPIRIN [Suspect]
     Indication: STENT PLACEMENT
     Route: 048
     Dates: end: 20101007
  7. TRAMADOL HYDROCHLORIDE [Concomitant]
     Dates: start: 20100910, end: 20100917
  8. EUTHYROX [Concomitant]
     Indication: HYPOTHYROIDISM
     Route: 048
  9. ALL OTHER THERAPEUTIC PRODUCTS [Concomitant]
     Indication: PROPHYLAXIS
     Route: 065
     Dates: start: 20100903
  10. NEURONTIN [Concomitant]
     Indication: DIABETIC NEUROPATHY
     Route: 048
  11. ACETAMINOPHEN [Concomitant]
     Dates: start: 20100910, end: 20100917
  12. PANTOPRAZOLE [Concomitant]
     Route: 048
  13. LANTUS [Concomitant]
     Dosage: DOSE:30 UNIT(S)
     Route: 051
     Dates: start: 20081204
  14. PLAVIX [Suspect]
     Indication: PROPHYLAXIS
     Route: 048
     Dates: start: 20100114
  15. IBUPROFEN [Concomitant]
     Indication: BACK PAIN
     Dates: start: 20100910, end: 20100917
  16. FERRITIN [Concomitant]
     Indication: ANAEMIA
     Route: 051
     Dates: start: 20100901
  17. ATACAND [Concomitant]
     Route: 048
  18. ASPIRIN [Suspect]
     Indication: PROPHYLAXIS
     Route: 048
     Dates: end: 20101007
  19. BETASERC [Concomitant]
     Indication: VERTIGO
     Route: 048
     Dates: start: 20101007
  20. ALNA [Concomitant]
     Route: 048
  21. NOOTROPIL [Concomitant]
     Indication: TRANSIENT ISCHAEMIC ATTACK
     Route: 048
  22. LASIX [Concomitant]
     Route: 048
  23. TRAMUNDAL [Concomitant]
     Route: 048

REACTIONS (3)
  - GASTRIC POLYPS [None]
  - MELAENA [None]
  - GASTRIC HAEMORRHAGE [None]
